FAERS Safety Report 9215777 (Version 2)
Quarter: 2013Q2

REPORT INFORMATION
  Report Type: Spontaneous
  Country: US (occurrence: US)
  Receive Date: 20130408
  Receipt Date: 20130524
  Transmission Date: 20140414
  Serious: No
  Sender: FDA-Public Use
  Company Number: US-009507513-1304USA001690

PATIENT
  Age: 78 Year
  Sex: Male
  Weight: 74.38 kg

DRUGS (8)
  1. ALENDRONATE SODIUM [Suspect]
     Indication: OSTEOPOROSIS
     Dosage: 70 MG TAKEN ONCE WEEKLY
     Route: 048
     Dates: start: 20120629, end: 20130329
  2. ASPIRIN [Concomitant]
     Dosage: UNK
  3. ZETIA [Concomitant]
  4. BENAZEPRIL HYDROCHLORIDE [Concomitant]
  5. PLAVIX [Concomitant]
  6. ZOLPIDEM TARTRATE [Concomitant]
  7. CARVEDILOL [Concomitant]
  8. LIVIAL [Concomitant]

REACTIONS (7)
  - Muscular weakness [Not Recovered/Not Resolved]
  - Bone pain [Not Recovered/Not Resolved]
  - Arthralgia [Not Recovered/Not Resolved]
  - Myalgia [Not Recovered/Not Resolved]
  - Myalgia [Unknown]
  - Faecal incontinence [Unknown]
  - Gait disturbance [Unknown]
